FAERS Safety Report 19303758 (Version 4)
Quarter: 2021Q2

REPORT INFORMATION
  Report Type: Report from Study
  Country: SG (occurrence: SG)
  Receive Date: 20210525
  Receipt Date: 20210624
  Transmission Date: 20210717
  Serious: Yes (Life-Threatening, Hospitalization)
  Sender: FDA-Public Use
  Company Number: SG-ROCHE-2832800

PATIENT
  Age: 61 Year
  Sex: Male
  Weight: 63.1 kg

DRUGS (10)
  1. PACLITAXEL. [Suspect]
     Active Substance: PACLITAXEL
     Indication: NON-SMALL CELL LUNG CANCER
     Route: 042
     Dates: start: 20210427, end: 20210427
  2. IBUPROFEN. [Concomitant]
     Active Substance: IBUPROFEN
  3. CARBOPLATIN. [Suspect]
     Active Substance: CARBOPLATIN
     Indication: NON-SMALL CELL LUNG CANCER
     Route: 042
     Dates: start: 20210427, end: 20210427
  4. AMLODIPINE [Concomitant]
     Active Substance: AMLODIPINE BESYLATE
  5. BEVACIZUMAB. [Suspect]
     Active Substance: BEVACIZUMAB
     Indication: NON-SMALL CELL LUNG CANCER
     Route: 042
     Dates: start: 20210427, end: 20210427
  6. METHYLPREDNISOLONE. [Concomitant]
     Active Substance: METHYLPREDNISOLONE
     Route: 042
  7. ATEZOLIZUMAB. [Suspect]
     Active Substance: ATEZOLIZUMAB
     Indication: NON-SMALL CELL LUNG CANCER
     Route: 042
     Dates: start: 20210427, end: 20210427
  8. PIPTAZO [Concomitant]
  9. PREDNISOLONE. [Concomitant]
     Active Substance: PREDNISOLONE
  10. BISOPROLOL [Concomitant]
     Active Substance: BISOPROLOL

REACTIONS (3)
  - Cytokine release syndrome [Recovered/Resolved]
  - Nervous system disorder [Recovered/Resolved with Sequelae]
  - Hypertension [Recovering/Resolving]

NARRATIVE: CASE EVENT DATE: 20210502
